FAERS Safety Report 11603164 (Version 1)
Quarter: 2015Q4

REPORT INFORMATION
  Report Type: Spontaneous
  Country: US (occurrence: None)
  Receive Date: 20151005
  Receipt Date: 20151005
  Transmission Date: 20160304
  Serious: Yes (Hospitalization, Disabling, Other)
  Sender: FDA-Public Use
  Company Number: None

PATIENT
  Age: 25 Year
  Sex: Male
  Weight: 62.6 kg

DRUGS (6)
  1. TYLENOL [Concomitant]
     Active Substance: ACETAMINOPHEN
  2. CYPRO [Concomitant]
  3. MULTI VITAMIN [Concomitant]
     Active Substance: VITAMINS
  4. PROBIOTICS [Concomitant]
     Active Substance: PROBIOTICS NOS
  5. OXYCODONE [Concomitant]
     Active Substance: OXYCODONE
  6. ENTYVIO [Suspect]
     Active Substance: VEDOLIZUMAB
     Indication: CROHN^S DISEASE
     Dosage: 6 WKS, INTO A VEIN
     Route: 042
     Dates: start: 20150212, end: 20150721

REACTIONS (9)
  - Red blood cell abnormality [None]
  - Urinary tract obstruction [None]
  - Abdominal pain upper [None]
  - Decreased appetite [None]
  - Chromaturia [None]
  - Gastric infection [None]
  - Weight decreased [None]
  - Haemoglobin decreased [None]
  - Hypersomnia [None]

NARRATIVE: CASE EVENT DATE: 20150728
